FAERS Safety Report 8966380 (Version 2)
Quarter: 2013Q1

REPORT INFORMATION
  Report Type: Spontaneous
  Country: HR (occurrence: HR)
  Receive Date: 20121217
  Receipt Date: 20130227
  Transmission Date: 20140127
  Serious: Yes (Other)
  Sender: FDA-Public Use
  Company Number: HR-ELI_LILLY_AND_COMPANY-HR201212002676

PATIENT
  Age: 52 Year
  Sex: Female
  Weight: 75 kg

DRUGS (5)
  1. ZYPADHERA [Suspect]
     Indication: SCHIZOPHRENIA
     Dosage: 405 MG, MONTHLY (1/M)
     Dates: start: 20121023
  2. GLUCOVANCE [Concomitant]
  3. LANTUS [Concomitant]
  4. APAURIN [Concomitant]
     Dosage: 5 UG, UNKNOWN
  5. ZYPREXA [Concomitant]
     Dosage: 10 MG, UNK
     Route: 048
     Dates: start: 20130116, end: 20130212

REACTIONS (2)
  - Hypotension [Recovered/Resolved]
  - Malaise [Recovered/Resolved]
